FAERS Safety Report 15601472 (Version 1)
Quarter: 2018Q4

REPORT INFORMATION
  Report Type: Spontaneous
  Country: US (occurrence: US)
  Receive Date: 20181109
  Receipt Date: 20181109
  Transmission Date: 20190205
  Serious: No
  Sender: FDA-Public Use
  Company Number: US-TEVA-2018-US-972750

PATIENT
  Sex: Female

DRUGS (1)
  1. RISEDRONATE [Suspect]
     Active Substance: RISEDRONATE SODIUM

REACTIONS (4)
  - Headache [Unknown]
  - Dyspepsia [Unknown]
  - Nausea [Unknown]
  - Malaise [Unknown]
